FAERS Safety Report 17466984 (Version 1)
Quarter: 2020Q1

REPORT INFORMATION
  Report Type: Spontaneous
  Country: US (occurrence: US)
  Receive Date: 20200227
  Receipt Date: 20200227
  Transmission Date: 20200409
  Serious: No
  Sender: FDA-Public Use
  Company Number: US-BEH-2020113154

PATIENT
  Age: 28 Year
  Sex: Male

DRUGS (1)
  1. HIZENTRA [Suspect]
     Active Substance: HUMAN IMMUNOGLOBULIN G
     Indication: HUMORAL IMMUNE DEFECT
     Dosage: 20 GRAM, QOW
     Route: 058
     Dates: start: 20190320

REACTIONS (4)
  - Pain in extremity [Unknown]
  - Feeling hot [Unknown]
  - Swelling [Unknown]
  - Pyrexia [Unknown]

NARRATIVE: CASE EVENT DATE: 202002
